FAERS Safety Report 10038258 (Version 2)
Quarter: 2014Q2

REPORT INFORMATION
  Report Type: Spontaneous
  Country: US (occurrence: US)
  Receive Date: 20140326
  Receipt Date: 20140520
  Transmission Date: 20141212
  Serious: No
  Sender: FDA-Public Use
  Company Number: US-009507513-1403USA011181

PATIENT
  Age: 65 Year
  Sex: Female
  Weight: 66.67 kg

DRUGS (5)
  1. ASMANEX TWISTHALER [Suspect]
     Indication: ASTHMA
     Dosage: ASMANEX SAMPLE UNIT FROM PHYSICIANS OFFICE
     Route: 055
  2. ASMANEX TWISTHALER [Suspect]
     Dosage: STRENGTH 220 Y, 1 TO 2 PUFFS TWICE A DAY
     Route: 055
     Dates: start: 20140102
  3. ASMANEX TWISTHALER [Suspect]
     Dosage: DOSAGE FORM 220 MICROGRAM 4 INHALATION
     Route: 055
     Dates: start: 20140116
  4. PROVENTIL HFA [Concomitant]
     Indication: ASTHMA
     Dosage: 2 PUFF, EVERY 4 HOURS
     Route: 055
     Dates: start: 20140116
  5. ZANTAC [Concomitant]
     Dosage: UNK
     Route: 048
     Dates: start: 2013

REACTIONS (5)
  - Incorrect dose administered [Unknown]
  - Incorrect dose administered [Unknown]
  - Product quality issue [Unknown]
  - Product quality issue [Unknown]
  - Adverse event [Unknown]
